FAERS Safety Report 19698049 (Version 1)
Quarter: 2021Q3

REPORT INFORMATION
  Report Type: Spontaneous
  Country: US (occurrence: US)
  Receive Date: 20210813
  Receipt Date: 20210813
  Transmission Date: 20211014
  Serious: No
  Sender: FDA-Public Use
  Company Number: US-SPECGX-T202001987

PATIENT
  Sex: Female

DRUGS (2)
  1. ROXICODONE [Suspect]
     Active Substance: OXYCODONE HYDROCHLORIDE
     Dosage: UNK
     Route: 065
  2. ROXICODONE [Suspect]
     Active Substance: OXYCODONE HYDROCHLORIDE
     Indication: PRODUCT USED FOR UNKNOWN INDICATION
     Dosage: 15 MILLIGRAM, TID
     Route: 065

REACTIONS (9)
  - Feeling abnormal [Unknown]
  - Hypersensitivity [Unknown]
  - Drug ineffective [Unknown]
  - Depression [Unknown]
  - Sedation [Unknown]
  - Intrusive thoughts [Unknown]
  - Nightmare [Unknown]
  - Counterfeit product administered [Unknown]
  - Cough [Unknown]
